FAERS Safety Report 8270107-X (Version None)
Quarter: 2012Q2

REPORT INFORMATION
  Report Type: 
  Country: None (occurrence: None)
  Receive Date: 20120410
  Receipt Date: 20120404
  Transmission Date: 20120825
  Serious: Yes (Other)
  Sender: FDA-Public Use
  Company Number: PHHY2012FR029466

PATIENT
  Age: 76 Year
  Sex: Female

DRUGS (1)
  1. ZOLEDRONOC ACID [Suspect]
     Indication: OSTEOPOROSIS
     Dosage: UNK UKN, UNK
     Route: 042
     Dates: start: 20120301

REACTIONS (6)
  - RED BLOOD CELL SEDIMENTATION RATE INCREASED [None]
  - INFLUENZA LIKE ILLNESS [None]
  - CHEST PAIN [None]
  - TRANSAMINASES INCREASED [None]
  - C-REACTIVE PROTEIN INCREASED [None]
  - MUSCULOSKELETAL PAIN [None]
